FAERS Safety Report 4686423-4 (Version None)
Quarter: 2005Q2

REPORT INFORMATION
  Report Type: 
  Country: None (occurrence: None)
  Receive Date: 20050606
  Receipt Date: 20050523
  Transmission Date: 20051028
  Serious: Yes (Other)
  Sender: FDA-Public Use
  Company Number: 2005059828

PATIENT
  Age: 50 Year
  Sex: Female

DRUGS (3)
  1. BEXTRA [Suspect]
     Indication: INFLAMMATION
     Dosage: 20 MG 920 MG, 1 IN 1 D), ORAL
     Route: 048
     Dates: start: 20050401, end: 20050401
  2. LEVOTHYROXINE SODIUM [Concomitant]
  3. SIMVASTATIN [Concomitant]

REACTIONS (3)
  - HYPERSENSITIVITY [None]
  - OEDEMA [None]
  - PRURITUS [None]
